FAERS Safety Report 4950491-2 (Version None)
Quarter: 2006Q1

REPORT INFORMATION
  Report Type: 
  Country: None (occurrence: None)
  Receive Date: 20060322
  Receipt Date: 20060223
  Transmission Date: 20060701
  Serious: Yes (Hospitalization)
  Sender: FDA-Public Use
  Company Number: FR-GLAXOSMITHKLINE-B0413231A

PATIENT
  Sex: Male
  Weight: 2.1 kg

DRUGS (4)
  1. RETROVIR [Suspect]
     Indication: ANTIVIRAL PROPHYLAXIS
     Dosage: .4MG FOUR TIMES PER DAY
     Route: 048
     Dates: start: 20051210, end: 20060103
  2. COMBIVIR [Suspect]
     Indication: DRUG EXPOSURE DURING PREGNANCY
     Dates: start: 20050822
  3. METHADONE [Concomitant]
     Indication: DRUG EXPOSURE DURING PREGNANCY
     Dosage: 20MG PER DAY
  4. VIRACEPT [Concomitant]
     Indication: DRUG EXPOSURE DURING PREGNANCY

REACTIONS (6)
  - AGITATION [None]
  - ATROPHY [None]
  - DRUG EXPOSURE DURING PREGNANCY [None]
  - ELECTROENCEPHALOGRAM ABNORMAL [None]
  - HYPOTONIA [None]
  - TREMOR [None]
